FAERS Safety Report 16758068 (Version 1)
Quarter: 2019Q3

REPORT INFORMATION
  Report Type: Spontaneous
  Country: US (occurrence: US)
  Receive Date: 20190830
  Receipt Date: 20190830
  Transmission Date: 20191005
  Serious: No
  Sender: FDA-Public Use
  Company Number: US-009507513-1908USA009430

PATIENT
  Age: 56 Year
  Sex: Male

DRUGS (3)
  1. CEFTRIAXONE. [Concomitant]
     Active Substance: CEFTRIAXONE
     Indication: ACTINOMYCOSIS
  2. METRONIDAZOLE. [Concomitant]
     Active Substance: METRONIDAZOLE
     Indication: ACTINOMYCOSIS
  3. CUBICIN [Suspect]
     Active Substance: DAPTOMYCIN
     Indication: ACTINOMYCOSIS
     Dosage: UNK

REACTIONS (1)
  - Product use in unapproved indication [Unknown]
